FAERS Safety Report 14309959 (Version 1)
Quarter: 2017Q4

REPORT INFORMATION
  Report Type: Report from Study
  Country: JP (occurrence: JP)
  Receive Date: 20171220
  Receipt Date: 20171220
  Transmission Date: 20180321
  Serious: Yes (Hospitalization)
  Sender: FDA-Public Use
  Company Number: JP-EISAI MEDICAL RESEARCH-EC-2017-034367

PATIENT
  Age: 28 Year
  Sex: Male
  Weight: 55 kg

DRUGS (6)
  1. CLOBAZAM [Concomitant]
     Active Substance: CLOBAZAM
  2. FYCOMPA [Suspect]
     Active Substance: PERAMPANEL
     Route: 048
     Dates: start: 20171019, end: 20171025
  3. FYCOMPA [Suspect]
     Active Substance: PERAMPANEL
     Indication: PARTIAL SEIZURES
     Route: 048
     Dates: start: 20171012, end: 20171018
  4. MARZULENE [Concomitant]
     Active Substance: SODIUM GUALENATE
  5. PROPOFOL. [Concomitant]
     Active Substance: PROPOFOL
  6. MIDAZOLAM [Concomitant]
     Active Substance: MIDAZOLAM HYDROCHLORIDE

REACTIONS (1)
  - Agitation [Recovering/Resolving]

NARRATIVE: CASE EVENT DATE: 20171025
